FAERS Safety Report 21362719 (Version 2)
Quarter: 2022Q4

REPORT INFORMATION
  Report Type: Report from Study
  Country: CN (occurrence: CN)
  Receive Date: 20220922
  Receipt Date: 20221007
  Transmission Date: 20230112
  Serious: Yes (Other)
  Sender: FDA-Public Use
  Company Number: CN-TEVA-2022-CN-2074741

PATIENT

DRUGS (1)
  1. AZITHROMYCIN [Suspect]
     Active Substance: AZITHROMYCIN
     Indication: Primary ciliary dyskinesia
     Dosage: AZITHROMYCIN 10 MG/KG THREE TIMES PER WEEK
     Route: 065

REACTIONS (2)
  - Lung disorder [Unknown]
  - Bronchiectasis [Unknown]
